FAERS Safety Report 7145062-6 (Version None)
Quarter: 2010Q4

REPORT INFORMATION
  Report Type: 
  Country: None (occurrence: None)
  Receive Date: 20101208
  Receipt Date: 20101130
  Transmission Date: 20110411
  Serious: Yes (Other)
  Sender: FDA-Public Use
  Company Number: US-JNJFOC-20101200682

PATIENT
  Sex: Female

DRUGS (2)
  1. DURAGESIC-100 [Suspect]
     Indication: PAIN
     Route: 062
  2. DURAGESIC-100 [Suspect]
     Route: 062

REACTIONS (7)
  - BREAKTHROUGH PAIN [None]
  - CROHN'S DISEASE [None]
  - DRUG DOSE OMISSION [None]
  - ENZYME ABNORMALITY [None]
  - FEELING ABNORMAL [None]
  - INJURY [None]
  - ROAD TRAFFIC ACCIDENT [None]
